FAERS Safety Report 16796680 (Version 1)
Quarter: 2019Q3

REPORT INFORMATION
  Report Type: Spontaneous
  Country: US (occurrence: US)
  Receive Date: 20190911
  Receipt Date: 20190911
  Transmission Date: 20191005
  Serious: Yes (Life-Threatening, Hospitalization, Other)
  Sender: FDA-Public Use
  Company Number: US-GLAXOSMITHKLINE-US2019GSK163156

PATIENT
  Age: 55 Year
  Sex: Male

DRUGS (4)
  1. FLUTICASONE FUROATE + VILANTEROL TRIFENATATE [Suspect]
     Active Substance: FLUTICASONE FUROATE\VILANTEROL TRIFENATATE
     Indication: PRODUCT USED FOR UNKNOWN INDICATION
     Dosage: UNK
     Route: 055
  2. TIOTROPIUM [Interacting]
     Active Substance: TIOTROPIUM
     Indication: PRODUCT USED FOR UNKNOWN INDICATION
     Dosage: UNK
     Route: 055
  3. GENVOYA [Interacting]
     Active Substance: COBICISTAT\ELVITEGRAVIR\EMTRICITABINE\TENOFOVIR ALAFENAMIDE FUMARATE
     Indication: ANTIRETROVIRAL THERAPY
     Dosage: UNK
  4. HYDROCHLOROTHIAZIDE + LISINOPRIL [Concomitant]
     Active Substance: HYDROCHLOROTHIAZIDE\LISINOPRIL
     Indication: PRODUCT USED FOR UNKNOWN INDICATION
     Dosage: UNK

REACTIONS (8)
  - Drug interaction [Unknown]
  - Central obesity [Unknown]
  - Cushingoid [Unknown]
  - Hypotension [Recovered/Resolved]
  - Adrenal suppression [Recovered/Resolved]
  - Lipohypertrophy [Unknown]
  - Cortisol increased [Recovered/Resolved]
  - Adrenal insufficiency [Recovered/Resolved]
